FAERS Safety Report 23584281 (Version 2)
Quarter: 2024Q1

REPORT INFORMATION
  Report Type: Spontaneous
  Country: JP (occurrence: JP)
  Receive Date: 20240301
  Receipt Date: 20240307
  Transmission Date: 20240410
  Serious: Yes (Hospitalization, Other)
  Sender: FDA-Public Use
  Company Number: JP-GLAXOSMITHKLINE-JP2024JPN025261

PATIENT

DRUGS (7)
  1. LAMICTAL [Suspect]
     Active Substance: LAMOTRIGINE
     Indication: Partial seizures with secondary generalisation
     Dosage: 5 MG, QD (0.08 MG/KG/DAY)
  2. VALPROATE [Concomitant]
     Active Substance: VALPROIC ACID
     Indication: Epilepsy
     Dosage: UNK
  3. VALPROATE [Concomitant]
     Active Substance: VALPROIC ACID
     Indication: Intellectual disability
     Dosage: 600 MG, QD
  4. VALPROATE [Concomitant]
     Active Substance: VALPROIC ACID
     Indication: Partial seizures with secondary generalisation
  5. LACOSAMIDE [Concomitant]
     Active Substance: LACOSAMIDE
     Indication: Epilepsy
     Dosage: UNK
  6. LACOSAMIDE [Concomitant]
     Active Substance: LACOSAMIDE
     Indication: Intellectual disability
     Dosage: 300 MG, QD
  7. LACOSAMIDE [Concomitant]
     Active Substance: LACOSAMIDE
     Indication: Partial seizures with secondary generalisation

REACTIONS (11)
  - Haemophagocytic lymphohistiocytosis [Recovering/Resolving]
  - Pyrexia [Recovered/Resolved]
  - Lymphadenopathy [Unknown]
  - Pruritus [Unknown]
  - Erythema [Recovered/Resolved]
  - Rash maculo-papular [Recovered/Resolved]
  - Febrile neutropenia [Recovered/Resolved]
  - Hepatic function abnormal [Unknown]
  - Splenomegaly [Unknown]
  - Product use issue [Unknown]
  - Prescribed underdose [Unknown]
